FAERS Safety Report 12660025 (Version 2)
Quarter: 2016Q3

REPORT INFORMATION
  Report Type: Spontaneous
  Country: US (occurrence: US)
  Receive Date: 20160817
  Receipt Date: 20160929
  Transmission Date: 20161109
  Serious: Yes (Hospitalization, Other)
  Sender: FDA-Public Use
  Company Number: US-PFIZER INC-2016385688

PATIENT
  Age: 36 Year
  Sex: Male
  Weight: 73 kg

DRUGS (11)
  1. TEARS NATURALE FREE [Concomitant]
     Active Substance: DEXTRAN 70\HYPROMELLOSE 2910 (4000 MPA.S)
     Dosage: 1 GTT, 2X/DAY (1 GTT EYELID MARGIN BOTH )
     Route: 047
  2. LIDODERM [Concomitant]
     Active Substance: LIDOCAINE
     Dosage: 5 %, DAILY (1 PATCH TOPICAL DAILY)
     Route: 061
  3. MS CONTIN [Concomitant]
     Active Substance: MORPHINE SULFATE
     Dosage: 30 MG, 2X/DAY (Q 12HR)
     Route: 048
  4. COLACE [Concomitant]
     Active Substance: DOCUSATE SODIUM
     Indication: CONSTIPATION
     Dosage: 100 MG, AS NEEDED (1 CAP PO BID)
     Route: 048
  5. TRAMADOL. [Concomitant]
     Active Substance: TRAMADOL
     Indication: PAIN
     Dosage: 2 IN THE MORNING AND ONE IN THE NIGHT
     Route: 048
  6. ONDANSETRON [Concomitant]
     Active Substance: ONDANSETRON
     Dosage: 8 MG, 2X/DAY
     Route: 048
  7. TRAMADOL. [Concomitant]
     Active Substance: TRAMADOL
     Dosage: 50 MG, AS NEEDED (Q6HR, SCHEDULED/PRN)
     Route: 048
  8. IBUPROFEN. [Concomitant]
     Active Substance: IBUPROFEN
     Indication: PAIN
     Dosage: 600 MG, AS NEEDED (QID WITH FOOD OR MILK AS NEEDED )
     Route: 048
  9. MORPHINE [Concomitant]
     Active Substance: MORPHINE
     Dosage: 15 MG, 2X/DAY (Q 12 HR)
     Route: 048
  10. SUTENT [Suspect]
     Active Substance: SUNITINIB MALATE
     Indication: GASTROINTESTINAL STROMAL TUMOUR
     Dosage: 50 MG, CYCLIC, ONCE A DAY FOR 28 DAY
     Route: 048
     Dates: start: 201604
  11. SUTENT [Suspect]
     Active Substance: SUNITINIB MALATE
     Dosage: 50 MG, CYCLIC (50MG DAILY  4 WEEKS THEN 2 WEEKS OFF X 4 CYCLES)
     Route: 048
     Dates: start: 20160411, end: 20160817

REACTIONS (8)
  - Blood potassium decreased [Unknown]
  - Neoplasm progression [Unknown]
  - Hepatitis [Not Recovered/Not Resolved]
  - Anaemia [Unknown]
  - Pulmonary oedema [Not Recovered/Not Resolved]
  - Urinary tract infection [Unknown]
  - Chest pain [Unknown]
  - Pain [Unknown]

NARRATIVE: CASE EVENT DATE: 20160810
